FAERS Safety Report 8367532-5 (Version None)
Quarter: 2012Q2

REPORT INFORMATION
  Report Type: 
  Country: None (occurrence: None)
  Receive Date: 20120517
  Receipt Date: 20120508
  Transmission Date: 20120825
  Serious: Yes (Other)
  Sender: FDA-Public Use
  Company Number: US-ASTRAZENECA-2011SE06845

PATIENT
  Age: 68 Year
  Sex: Female

DRUGS (6)
  1. SEROQUEL [Suspect]
     Route: 048
  2. CRESTOR [Suspect]
     Route: 048
  3. SEROQUEL [Suspect]
     Route: 048
  4. NEXIUM [Suspect]
     Route: 048
  5. CPAP MACHINE [Concomitant]
  6. SEROQUEL [Suspect]
     Route: 048

REACTIONS (17)
  - RESTLESSNESS [None]
  - PALPITATIONS [None]
  - SOMNOLENCE [None]
  - THROAT TIGHTNESS [None]
  - DYSPNOEA [None]
  - MALAISE [None]
  - SUICIDAL IDEATION [None]
  - INTENTIONAL DRUG MISUSE [None]
  - BLOOD CHOLESTEROL INCREASED [None]
  - DYSPHAGIA [None]
  - ANXIETY [None]
  - EMOTIONAL DISTRESS [None]
  - SLEEP APNOEA SYNDROME [None]
  - ABDOMINAL PAIN UPPER [None]
  - ROAD TRAFFIC ACCIDENT [None]
  - FEELING ABNORMAL [None]
  - DEPRESSION [None]
